FAERS Safety Report 8240971-9 (Version None)
Quarter: 2012Q1

REPORT INFORMATION
  Report Type: 
  Country: None (occurrence: None)
  Receive Date: 20120328
  Receipt Date: 20120322
  Transmission Date: 20120608
  Serious: Yes (Life-Threatening, Other)
  Sender: FDA-Public Use
  Company Number: NL-TEVA-313898ISR

PATIENT
  Sex: Female
  Weight: 80 kg

DRUGS (8)
  1. HYDROCHLOROTHIAZIDE [Concomitant]
     Dates: start: 20111014
  2. COPAXONE [Suspect]
     Indication: MULTIPLE SCLEROSIS
     Dosage: 20 MILLIGRAM;
     Route: 058
     Dates: start: 20110711
  3. VENLAFAXINE [Concomitant]
  4. OMEPRAZOLE [Concomitant]
     Dosage: 40 MILLIGRAM;
  5. ZOLPIDEM TARTRATE [Concomitant]
     Dosage: 10 MILLIGRAM;
  6. ENALAPRIL MALEATE [Concomitant]
     Dosage: 30 MILLIGRAM;
  7. LEXAPRO [Concomitant]
     Dosage: 15 MILLIGRAM;
  8. ASCAL [Concomitant]
     Dosage: 100 MILLIGRAM;

REACTIONS (2)
  - CARDIOMEGALY [None]
  - CARDIAC FAILURE [None]
